FAERS Safety Report 11212108 (Version 2)
Quarter: 2015Q2

REPORT INFORMATION
  Report Type: Report from Study
  Country: TR (occurrence: TR)
  Receive Date: 20150623
  Receipt Date: 20150625
  Transmission Date: 20150821
  Serious: Yes (Other)
  Sender: FDA-Public Use
  Company Number: PHHY2015TR071562

PATIENT
  Age: 10 Year
  Sex: Male
  Weight: 24 kg

DRUGS (1)
  1. SOMATROPIN [Suspect]
     Active Substance: SOMATROPIN
     Indication: GROWTH HORMONE DEFICIENCY
     Dosage: 0.7 MG, QD
     Route: 058
     Dates: start: 20141223

REACTIONS (1)
  - Eye injury [Not Recovered/Not Resolved]
